FAERS Safety Report 26080749 (Version 1)
Quarter: 2025Q4

REPORT INFORMATION
  Report Type: Spontaneous
  Country: GB (occurrence: GB)
  Receive Date: 20251124
  Receipt Date: 20251124
  Transmission Date: 20260117
  Serious: Yes (Other)
  Sender: TEVA
  Company Number: None

PATIENT
  Age: 60 Year
  Sex: Male
  Weight: 82 kg

DRUGS (6)
  1. TAMSULOSIN [Suspect]
     Active Substance: TAMSULOSIN
     Indication: Adverse drug reaction
     Dates: start: 20250906, end: 20251113
  2. ATORVASTATIN [Concomitant]
     Active Substance: ATORVASTATIN
     Indication: Magnetic resonance imaging heart
  3. BISOPROLOL [Concomitant]
     Active Substance: BISOPROLOL
     Indication: Magnetic resonance imaging heart
  4. METFORMIN [Concomitant]
     Active Substance: METFORMIN HYDROCHLORIDE
     Indication: Type 2 diabetes mellitus
  5. LISINOPRIL [Concomitant]
     Active Substance: LISINOPRIL
     Indication: Diabetes mellitus
  6. ASPIRIN [Concomitant]
     Active Substance: ASPIRIN
     Indication: Product used for unknown indication

REACTIONS (1)
  - Muscle fatigue [Recovering/Resolving]

NARRATIVE: CASE EVENT DATE: 20251020
